FAERS Safety Report 25918050 (Version 1)
Quarter: 2025Q4

REPORT INFORMATION
  Report Type: Report from Study
  Country: PK (occurrence: PK)
  Receive Date: 20251014
  Receipt Date: 20251014
  Transmission Date: 20260119
  Serious: Yes (Death)
  Sender: ROCHE
  Company Number: PK-ROCHE-10000408718

PATIENT
  Age: 59 Year
  Sex: Female

DRUGS (1)
  1. RITUXIMAB [Suspect]
     Active Substance: RITUXIMAB
     Indication: Diffuse large B-cell lymphoma
     Route: 042
     Dates: start: 20250509

REACTIONS (7)
  - Death [Fatal]
  - Localised infection [Unknown]
  - Wound [Recovered/Resolved]
  - Dyspepsia [Unknown]
  - Abdominal pain [Unknown]
  - Pyrexia [Unknown]
  - Respiratory distress [Unknown]

NARRATIVE: CASE EVENT DATE: 20250907
